FAERS Safety Report 8074491-1 (Version None)
Quarter: 2012Q1

REPORT INFORMATION
  Report Type: 
  Country: None (occurrence: None)
  Receive Date: 20120126
  Receipt Date: 20120124
  Transmission Date: 20120608
  Serious: Yes (Death, Hospitalization, Other)
  Sender: FDA-Public Use
  Company Number: JP-CELGENEUS-087-21880-11060984

PATIENT
  Sex: Male

DRUGS (28)
  1. REVLIMID [Suspect]
     Indication: ACUTE MYELOID LEUKAEMIA
     Dosage: 10 MILLIGRAM
     Route: 048
     Dates: start: 20101015, end: 20101104
  2. OXYCONTIN [Concomitant]
     Indication: SUBMANDIBULAR MASS
     Dosage: 10 MILLIGRAM
     Route: 048
     Dates: start: 20101015, end: 20101021
  3. LANIRAPID [Concomitant]
     Indication: CARDIAC FAILURE
     Dosage: .1 MILLIGRAM
     Route: 048
     Dates: start: 20091223
  4. LASIX [Concomitant]
     Indication: CARDIAC FAILURE
     Dosage: 40 MILLIGRAM
     Route: 048
     Dates: start: 20090901
  5. VANCOMYCIN [Concomitant]
     Indication: INFECTION
     Dosage: 1 GRAM
     Route: 041
     Dates: start: 20101108, end: 20101111
  6. HYDREA [Concomitant]
     Indication: ACUTE MYELOID LEUKAEMIA
     Dosage: 1000 MILLIGRAM
     Route: 048
     Dates: start: 20101112, end: 20101130
  7. HUMULIN R [Concomitant]
     Indication: DIABETES MELLITUS
     Dosage: 12-30U
     Route: 058
     Dates: start: 20101014
  8. OXYCONTIN [Concomitant]
     Dosage: 10 MILLIGRAM
     Route: 048
     Dates: start: 20101130, end: 20101130
  9. TORSEMIDE [Concomitant]
     Indication: CARDIAC FAILURE
     Dosage: 4 MILLIGRAM
     Route: 048
     Dates: start: 20091124
  10. HUMULIN N [Concomitant]
     Indication: DIABETES MELLITUS
     Dosage: 5-10U
     Route: 058
     Dates: start: 20101014
  11. CEFEPIME HYDROCHLORIDE [Concomitant]
     Indication: CARDIAC FAILURE
     Dosage: 3 GRAM
     Route: 041
     Dates: start: 20101017, end: 20101022
  12. OXYCONTIN [Concomitant]
     Dosage: 20 MILLIGRAM
     Route: 048
     Dates: start: 20101026, end: 20101103
  13. OXYCONTIN [Concomitant]
     Dosage: 10 MILLIGRAM
     Route: 048
     Dates: start: 20101104, end: 20101108
  14. OXYCONTIN [Concomitant]
     Dosage: 20 MILLIGRAM
     Route: 048
     Dates: start: 20101109, end: 20101129
  15. REVLIMID [Suspect]
     Dosage: 10 MILLIGRAM
     Route: 048
     Dates: start: 20101112, end: 20101130
  16. DIART [Concomitant]
     Indication: CARDIAC FAILURE
     Dosage: 60 MILLIGRAM
     Route: 048
     Dates: start: 20091112
  17. AMIODARONE HYDROCHLORIDE [Concomitant]
     Indication: CARDIAC FAILURE
     Dosage: 200 MILLIGRAM
     Route: 048
     Dates: start: 20091105
  18. PIMOBENDAN [Concomitant]
     Indication: CARDIAC FAILURE
     Dosage: 5 MILLIGRAM
     Route: 048
  19. WARFARIN SODIUM [Concomitant]
     Indication: CARDIAC FAILURE
     Dosage: 2 MILLIGRAM
     Route: 048
     Dates: start: 20090901
  20. MUCOSTA [Concomitant]
     Indication: PROPHYLAXIS
     Dosage: 300 MILLIGRAM
     Route: 048
  21. LANSOPRAZOLE [Concomitant]
     Dosage: 15 MILLIGRAM
     Route: 048
     Dates: start: 20091101
  22. FUROSEMIDE [Concomitant]
     Dosage: 60 MILLIGRAM
     Route: 041
     Dates: start: 20101130, end: 20101130
  23. MEROPENEM [Concomitant]
     Indication: CARDIAC FAILURE
     Dosage: 1.5 GRAM
     Route: 041
     Dates: start: 20101023, end: 20101111
  24. OXYCONTIN [Concomitant]
     Dosage: 10 MILLIGRAM
     Route: 048
     Dates: start: 20101023, end: 20101025
  25. ALLOPURINOL [Concomitant]
     Indication: PROPHYLAXIS
     Dosage: 200 MILLIGRAM
     Route: 048
  26. OXYCONTIN [Concomitant]
     Dosage: 20 MILLIGRAM
     Route: 048
     Dates: start: 20101022, end: 20101022
  27. FUROSEMIDE [Concomitant]
     Dosage: 20 MILLIGRAM
     Route: 041
     Dates: start: 20101110, end: 20101110
  28. FUROSEMIDE [Concomitant]
     Dosage: 40 MILLIGRAM
     Route: 041
     Dates: start: 20101111, end: 20101129

REACTIONS (4)
  - CARDIAC FAILURE CONGESTIVE [None]
  - NEUTROPHIL COUNT INCREASED [None]
  - INTERSTITIAL LUNG DISEASE [None]
  - BLAST CELL COUNT INCREASED [None]
